FAERS Safety Report 5413882-1 (Version None)
Quarter: 2007Q3

REPORT INFORMATION
  Report Type: 
  Country: None (occurrence: None)
  Receive Date: 20070814
  Receipt Date: 20060307
  Transmission Date: 20080115
  Serious: Yes (Hospitalization)
  Sender: FDA-Public Use
  Company Number: US-JNJFOC-20050300907

PATIENT
  Sex: Male
  Weight: 55.79 kg

DRUGS (7)
  1. RISPERIDONE [Suspect]
     Route: 030
  2. RISPERIDONE [Suspect]
     Indication: BIPOLAR DISORDER
     Route: 030
  3. CHLORTHALIDONE [Concomitant]
  4. TRICOR [Concomitant]
  5. ATENOLOL [Concomitant]
  6. DEPAKOTE [Concomitant]
  7. MOTRIN [Concomitant]

REACTIONS (2)
  - AGGRESSION [None]
  - AGITATION [None]
